FAERS Safety Report 9917588 (Version 2)
Quarter: 2014Q2

REPORT INFORMATION
  Report Type: Spontaneous
  Country: US (occurrence: US)
  Receive Date: 20140221
  Receipt Date: 20140516
  Transmission Date: 20141212
  Serious: No
  Sender: FDA-Public Use
  Company Number: US-GILEAD-2014-0094886

PATIENT
  Age: 82 Year
  Sex: Female

DRUGS (12)
  1. LETAIRIS [Suspect]
     Indication: PULMONARY ARTERIAL HYPERTENSION
     Dosage: UNK
     Route: 065
     Dates: start: 20120119
  2. PRADAXA [Concomitant]
  3. CITRACAL                           /00751520/ [Concomitant]
  4. VITAMIN D NOS [Concomitant]
  5. ZYRTEC [Concomitant]
  6. XALATAN [Concomitant]
  7. COSOPT [Concomitant]
  8. VESICARE [Concomitant]
  9. TORSEMIDE [Concomitant]
  10. ATACAND [Concomitant]
  11. CELEBREX [Concomitant]
  12. FLUTICASONE [Concomitant]

REACTIONS (1)
  - Oedema peripheral [Not Recovered/Not Resolved]
